FAERS Safety Report 6067772-4 (Version None)
Quarter: 2009Q1

REPORT INFORMATION
  Report Type: 
  Country: None (occurrence: None)
  Receive Date: 20090203
  Receipt Date: 20090127
  Transmission Date: 20090719
  Serious: Yes (Death, Life-Threatening, Hospitalization)
  Sender: FDA-Public Use
  Company Number: POMP-1000444

PATIENT
  Age: 21 Month
  Sex: Male
  Weight: 10 kg

DRUGS (1)
  1. MYOZYME [Suspect]
     Indication: GLYCOGEN STORAGE DISEASE TYPE II
     Dosage: 20 MG/KG, Q2W, INTRAVENOUS
     Route: 042
     Dates: start: 20070705

REACTIONS (20)
  - AGITATION [None]
  - APNOEA [None]
  - BRONCHIOLITIS [None]
  - CARDIO-RESPIRATORY ARREST [None]
  - CHEST X-RAY ABNORMAL [None]
  - CONJUNCTIVITIS [None]
  - ERYTHEMA [None]
  - INFLUENZA [None]
  - INFUSION RELATED REACTION [None]
  - PALLOR [None]
  - PNEUMONIA ASPIRATION [None]
  - PYREXIA [None]
  - RESPIRATORY ARREST [None]
  - RHINORRHOEA [None]
  - SALIVARY HYPERSECRETION [None]
  - TACHYCARDIA [None]
  - UNRESPONSIVE TO STIMULI [None]
  - URTICARIA [None]
  - VIRAL INFECTION [None]
  - VOMITING [None]
